FAERS Safety Report 9586481 (Version 1)
Quarter: 2013Q4

REPORT INFORMATION
  Report Type: Spontaneous
  Country: US (occurrence: US)
  Receive Date: 20131003
  Receipt Date: 20131003
  Transmission Date: 20140711
  Serious: Yes (Disabling)
  Sender: FDA-Public Use
  Company Number: PHEH2013US020336

PATIENT
  Sex: Female

DRUGS (3)
  1. DIOVAN HCT [Suspect]
     Dosage: 1 DF, (160/ 25 MG) QD
  2. VALSARTAN + HCT [Suspect]
     Dosage: UNK UKN, UNK
  3. PROTEIN SUPPLEMENTS [Concomitant]

REACTIONS (2)
  - Rheumatoid arthritis [Unknown]
  - Impaired healing [Unknown]
